FAERS Safety Report 6637366-8 (Version None)
Quarter: 2010Q1

REPORT INFORMATION
  Report Type: 
  Country: None (occurrence: None)
  Receive Date: 20100316
  Receipt Date: 20100309
  Transmission Date: 20100710
  Serious: Yes (Hospitalization)
  Sender: FDA-Public Use
  Company Number: PHHO2010CA00887

PATIENT
  Sex: Male
  Weight: 86 kg

DRUGS (5)
  1. MYCOPHENOLATE MOFETIL [Suspect]
     Indication: HEART TRANSPLANT
     Dosage: UNK
     Route: 048
     Dates: start: 20091214, end: 20100105
  2. NEORAL [Suspect]
     Indication: HEART TRANSPLANT
     Dosage: UNK
  3. CERTICAN [Suspect]
     Indication: HEART TRANSPLANT
     Dosage: UNK
     Route: 048
     Dates: start: 20090122, end: 20091210
  4. CERTICAN [Suspect]
     Dosage: NO TREATMENT
     Dates: start: 20091211
  5. IMURAN [Concomitant]

REACTIONS (10)
  - ABDOMINAL PAIN [None]
  - COLITIS [None]
  - DIARRHOEA [None]
  - FLUID INTAKE REDUCED [None]
  - GASTROINTESTINAL INFLAMMATION [None]
  - HYPOPHAGIA [None]
  - LEUKOPENIA [None]
  - MALAISE [None]
  - NAUSEA [None]
  - OESOPHAGEAL CANDIDIASIS [None]
